FAERS Safety Report 12503234 (Version 1)
Quarter: 2016Q2

REPORT INFORMATION
  Report Type: Spontaneous
  Country: US (occurrence: US)
  Receive Date: 20160628
  Receipt Date: 20160628
  Transmission Date: 20160815
  Serious: No
  Sender: FDA-Public Use
  Company Number: US-FERRINGPH-2015FE03510

PATIENT
  Age: 31 Year
  Sex: Female

DRUGS (2)
  1. BRAVELLE [Suspect]
     Active Substance: FOLLITROPIN\UROFOLLITROPIN
     Indication: ARTIFICIAL INSEMINATION BY PARTNER
     Dosage: 225 UNITS, DAILY
     Dates: start: 20151001
  2. BRAVELLE [Suspect]
     Active Substance: FOLLITROPIN\UROFOLLITROPIN
     Dosage: 150 UNITS, UNK
     Dates: start: 201411, end: 20151001

REACTIONS (1)
  - Drug ineffective [Unknown]

NARRATIVE: CASE EVENT DATE: 201506
